FAERS Safety Report 9607413 (Version 2)
Quarter: 2013Q4

REPORT INFORMATION
  Report Type: Spontaneous
  Country: GB (occurrence: GB)
  Receive Date: 20131009
  Receipt Date: 20131009
  Transmission Date: 20140711
  Serious: Yes (Hospitalization)
  Sender: FDA-Public Use
  Company Number: GB-ACCORD-015677

PATIENT
  Age: 84 Year
  Sex: Female

DRUGS (4)
  1. AMLODIPINE [Suspect]
     Indication: BLOOD PRESSURE
     Dosage: 5 MG DAILY
     Route: 065
  2. FOLIC ACID [Concomitant]
     Indication: MUSCLE SPASMS
  3. GALFER [Concomitant]
     Indication: MINERAL SUPPLEMENTATION
  4. LISINOPRIL [Suspect]
     Indication: BLOOD PRESSURE
     Dosage: 10 MG DAILY
     Route: 065

REACTIONS (3)
  - Drug ineffective [Unknown]
  - Hypertension [Unknown]
  - Muscle spasms [Unknown]
